FAERS Safety Report 4287035-7 (Version None)
Quarter: 2004Q1

REPORT INFORMATION
  Report Type: 
  Country: None (occurrence: None)
  Receive Date: 20040204
  Receipt Date: 20040126
  Transmission Date: 20041129
  Serious: Yes (Hospitalization, Other)
  Sender: FDA-Public Use
  Company Number: 2003-07-3462

PATIENT
  Age: 29 Year
  Sex: Female
  Weight: 54 kg

DRUGS (6)
  1. RIBAVIRIN [Suspect]
     Indication: SEVERE ACUTE RESPIRATORY SYNDROME
     Dosage: 1200 MG Q12H ORAL
     Route: 048
     Dates: start: 20040414, end: 20040417
  2. VIRAZOLE [Suspect]
     Indication: SEVERE ACUTE RESPIRATORY SYNDROME
     Dosage: 2-4 GM QD INTRAVENOUS
     Route: 042
     Dates: start: 20030412, end: 20030412
  3. VIRAZOLE [Suspect]
     Indication: SEVERE ACUTE RESPIRATORY SYNDROME
     Dosage: 2-4 GM QD INTRAVENOUS
     Route: 042
     Dates: start: 20030412, end: 20030414
  4. VIRAZOLE [Suspect]
     Indication: SEVERE ACUTE RESPIRATORY SYNDROME
     Dosage: 2-4 GM QD INTRAVENOUS
     Route: 042
     Dates: start: 20030412, end: 20030414
  5. LEVOFLOXACIN [Suspect]
     Indication: SEVERE ACUTE RESPIRATORY SYNDROME
     Dosage: 500 MG QD ORAL
     Route: 048
     Dates: start: 20030413, end: 20030418
  6. PREDNISONE [Concomitant]

REACTIONS (5)
  - ALANINE AMINOTRANSFERASE INCREASED [None]
  - ASPARTATE AMINOTRANSFERASE INCREASED [None]
  - BLOOD LACTATE DEHYDROGENASE INCREASED [None]
  - HYPOCALCAEMIA [None]
  - HYPOMAGNESAEMIA [None]
